FAERS Safety Report 4621812-5 (Version None)
Quarter: 2005Q1

REPORT INFORMATION
  Report Type: 
  Country: None (occurrence: None)
  Receive Date: 20050329
  Receipt Date: 20050322
  Transmission Date: 20050727
  Serious: Yes (Hospitalization, Disabling)
  Sender: FDA-Public Use
  Company Number: AU-ROCHE-399287

PATIENT
  Age: 43 Year
  Sex: Male
  Weight: 86.6 kg

DRUGS (4)
  1. PEG-INTERFERON ALFA 2A (RO 25-8310) [Suspect]
     Route: 058
     Dates: start: 20041216, end: 20050306
  2. PEG-INTERFERON ALFA 2A (RO 25-8310) [Suspect]
     Route: 058
     Dates: start: 20050307, end: 20050310
  3. RIBAVIRIN [Suspect]
     Route: 048
     Dates: start: 20041216, end: 20050306
  4. RIBAVIRIN [Suspect]
     Dosage: IN THE MORNING. DECREASED DOSEAGE.
     Route: 048
     Dates: start: 20050307, end: 20050310

REACTIONS (7)
  - DEHYDRATION [None]
  - DIARRHOEA [None]
  - GIARDIASIS [None]
  - HYPOKALAEMIA [None]
  - NAUSEA [None]
  - VOMITING [None]
  - WEIGHT DECREASED [None]
